FAERS Safety Report 6368923-4 (Version None)
Quarter: 2009Q3

REPORT INFORMATION
  Report Type: 
  Country: None (occurrence: None)
  Receive Date: 20090918
  Receipt Date: 20090918
  Transmission Date: 20100115
  Serious: No
  Sender: FDA-Public Use
  Company Number: None

PATIENT
  Age: 72 Year
  Sex: Male
  Weight: 81.6475 kg

DRUGS (1)
  1. ARICEPT [Suspect]
     Indication: DEMENTIA
     Dosage: 10 MG. 1 TAB DAILY BY MOUTH
     Dates: start: 20080101, end: 20090801

REACTIONS (6)
  - ABNORMAL DREAMS [None]
  - BALANCE DISORDER [None]
  - PRURITUS [None]
  - RASH [None]
  - VISUAL IMPAIRMENT [None]
  - WEIGHT DECREASED [None]
